FAERS Safety Report 9100730 (Version 2)
Quarter: 2013Q2

REPORT INFORMATION
  Report Type: Spontaneous
  Country: DE (occurrence: DE)
  Receive Date: 20130215
  Receipt Date: 20130409
  Transmission Date: 20140414
  Serious: Yes (Life-Threatening, Hospitalization, Other)
  Sender: FDA-Public Use
  Company Number: DE-JNJFOC-20130204177

PATIENT
  Age: 63 Year
  Sex: Female
  Weight: 57 kg

DRUGS (5)
  1. GOLIMUMAB [Suspect]
     Indication: RHEUMATOID ARTHRITIS
     Route: 058
     Dates: start: 200911
  2. METHOTREXATE [Concomitant]
     Indication: RHEUMATOID ARTHRITIS
     Route: 058
     Dates: start: 200401
  3. PREDNISOLONE [Concomitant]
     Indication: RHEUMATOID ARTHRITIS
     Route: 048
     Dates: start: 200402
  4. ACTIVELLE (ESTRADIOL AND NORETHINDRONE) [Concomitant]
     Indication: HORMONE REPLACEMENT THERAPY
     Route: 065
  5. PARACETAMOL [Concomitant]
     Indication: RHEUMATOID ARTHRITIS
     Route: 048

REACTIONS (2)
  - Metastatic bronchial carcinoma [Not Recovered/Not Resolved]
  - Pulmonary fibrosis [Unknown]
